FAERS Safety Report 14010299 (Version 1)
Quarter: 2017Q3

REPORT INFORMATION
  Report Type: Spontaneous
  Country: US (occurrence: US)
  Receive Date: 20170926
  Receipt Date: 20170926
  Transmission Date: 20171128
  Serious: Yes (Hospitalization, Other)
  Sender: FDA-Public Use
  Company Number: US-BEH-2017083743

PATIENT
  Sex: Male
  Weight: 69.84 kg

DRUGS (14)
  1. BUDESONIDE. [Concomitant]
     Active Substance: BUDESONIDE
  2. BROVANA [Concomitant]
     Active Substance: ARFORMOTEROL TARTRATE
  3. COMBIVENT [Concomitant]
     Active Substance: ALBUTEROL SULFATE\IPRATROPIUM BROMIDE
  4. ZEMAIRA [Suspect]
     Active Substance: .ALPHA.1-PROTEINASE INHIBITOR HUMAN
     Dosage: UNK
     Route: 042
  5. MONTELUKAST [Concomitant]
     Active Substance: MONTELUKAST SODIUM
  6. FLUTICASONE. [Concomitant]
     Active Substance: FLUTICASONE
  7. FUROSEMIDE. [Concomitant]
     Active Substance: FUROSEMIDE
  8. ZEMAIRA [Suspect]
     Active Substance: .ALPHA.1-PROTEINASE INHIBITOR HUMAN
     Indication: ALPHA-1 ANTI-TRYPSIN DEFICIENCY
     Dosage: 60 MG/KG, QW
     Route: 042
     Dates: start: 20140919
  9. MUCINEX [Concomitant]
     Active Substance: GUAIFENESIN
  10. POTASSIUM CHLORIDE. [Concomitant]
     Active Substance: POTASSIUM CHLORIDE
  11. IPRATROPIUM BROMIDE AND ALBUTEROL SULFATE [Concomitant]
     Active Substance: ALBUTEROL SULFATE\IPRATROPIUM BROMIDE
  12. UMECLIDINIUM [Concomitant]
     Active Substance: UMECLIDINIUM BROMIDE
  13. NASAL SPRAY II [Concomitant]
  14. VISINE                             /00256502/ [Concomitant]

REACTIONS (2)
  - Respiratory distress [Unknown]
  - Hospice care [Unknown]

NARRATIVE: CASE EVENT DATE: 2017
